FAERS Safety Report 8063308-7 (Version None)
Quarter: 2012Q1

REPORT INFORMATION
  Report Type: 
  Country: None (occurrence: None)
  Receive Date: 20120123
  Receipt Date: 20111223
  Transmission Date: 20120608
  Serious: Yes (Hospitalization)
  Sender: FDA-Public Use
  Company Number: US-TEVA-2011006339

PATIENT
  Sex: Female
  Weight: 44 kg

DRUGS (11)
  1. TOCOPHEROL CONCENTRATE CAP [Concomitant]
     Dates: start: 19990101
  2. MORINGA [Concomitant]
     Dates: start: 20090101
  3. OXYCODONE HCL [Concomitant]
     Dates: start: 19990101
  4. ALBUTEROL SULFATE AUTOHALER [Concomitant]
     Dates: start: 20060101
  5. GABAPENTIN [Concomitant]
     Dates: start: 20090101
  6. LENALIDOMIDE [Suspect]
     Indication: MULTIPLE MYELOMA
     Dates: start: 20111107, end: 20111206
  7. CITALOPRAM HYDROBROMIDE [Concomitant]
     Dates: start: 20090101
  8. MULTI-VITAMINS [Concomitant]
     Dates: start: 19990101
  9. DEXAMETHASONE TAB [Concomitant]
     Dates: start: 20111107
  10. ALPRAZOLAM [Concomitant]
     Dates: start: 20080101
  11. TREANDA [Suspect]
     Indication: MULTIPLE MYELOMA
     Route: 042
     Dates: start: 20111107

REACTIONS (1)
  - ILEUS [None]
